FAERS Safety Report 11223173 (Version 1)
Quarter: 2015Q2

REPORT INFORMATION
  Report Type: Report from Study
  Country: BR (occurrence: BR)
  Receive Date: 20150626
  Receipt Date: 20150626
  Transmission Date: 20150821
  Serious: Yes (Other)
  Sender: FDA-Public Use
  Company Number: PHHY2015BR074715

PATIENT
  Sex: Female
  Weight: 66 kg

DRUGS (2)
  1. EXELON PATCH [Suspect]
     Active Substance: RIVASTIGMINE
     Indication: PRODUCT USED FOR UNKNOWN INDICATION
     Dosage: 4.6 MG, QD (5 CM2) (PATCH 5 CM2)
     Route: 062
     Dates: start: 2014
  2. EXELON PATCH [Suspect]
     Active Substance: RIVASTIGMINE
     Dosage: 9.5 MG, UNK (PATCH 10 CM2)
     Route: 062
     Dates: end: 2015

REACTIONS (6)
  - Learning disorder [Recovering/Resolving]
  - Confusional state [Recovering/Resolving]
  - Dizziness [Recovering/Resolving]
  - Malaise [Recovering/Resolving]
  - Mental impairment [Recovering/Resolving]
  - General physical health deterioration [Recovering/Resolving]
